FAERS Safety Report 24634510 (Version 1)
Quarter: 2024Q4

REPORT INFORMATION
  Report Type: Spontaneous
  Country: US (occurrence: US)
  Receive Date: 20241119
  Receipt Date: 20241119
  Transmission Date: 20250115
  Serious: Yes (Other)
  Sender: AUROBINDO
  Company Number: US-AUROBINDO-AUR-APL-2024-055332

PATIENT
  Age: 5 Month
  Sex: Female

DRUGS (7)
  1. OMEPRAZOLE [Suspect]
     Active Substance: OMEPRAZOLE
     Indication: Enterocolitis
     Dosage: UNK
     Route: 065
  2. FAMOTIDINE [Suspect]
     Active Substance: FAMOTIDINE
     Indication: Enterocolitis
     Dosage: UNK
     Route: 065
  3. ERYTHROMYCIN [Suspect]
     Active Substance: ERYTHROMYCIN
     Indication: Enterocolitis
     Dosage: UNK
     Route: 065
  4. CYPROHEPTADINE [Suspect]
     Active Substance: CYPROHEPTADINE
     Indication: Enterocolitis
     Dosage: UNK
     Route: 065
  5. NUTRAMIGEN [Concomitant]
     Active Substance: AMINO ACIDS
     Indication: Enterocolitis
     Dosage: UNK
     Route: 065
  6. ENFAMIL REGULINE [Concomitant]
     Indication: Enterocolitis
     Dosage: UNK
     Route: 065
  7. ELECARE FOR INFANTS [Concomitant]
     Indication: Enterocolitis
     Dosage: UNK
     Route: 065

REACTIONS (1)
  - Drug ineffective [Unknown]
